FAERS Safety Report 4633868-4 (Version None)
Quarter: 2005Q2

REPORT INFORMATION
  Report Type: 
  Country: None (occurrence: None)
  Receive Date: 20050325
  Receipt Date: 20050117
  Transmission Date: 20051028
  Serious: No
  Sender: FDA-Public Use
  Company Number: USA041287115

PATIENT
  Age: 87 Year
  Sex: Female

DRUGS (1)
  1. FORTEO [Suspect]
     Indication: BONE DISORDER
     Dosage: 20 UG/1 DAY
     Dates: start: 20040101

REACTIONS (9)
  - COUGH [None]
  - DIZZINESS [None]
  - DYSPNOEA [None]
  - EYE DISCHARGE [None]
  - HEADACHE [None]
  - INJECTION SITE HAEMORRHAGE [None]
  - LABORATORY TEST ABNORMAL [None]
  - NAUSEA [None]
  - RESPIRATORY TRACT CONGESTION [None]
